FAERS Safety Report 7536143-3 (Version None)
Quarter: 2011Q2

REPORT INFORMATION
  Report Type: 
  Country: None (occurrence: None)
  Receive Date: 20110609
  Receipt Date: 20110527
  Transmission Date: 20111010
  Serious: Yes (Other)
  Sender: FDA-Public Use
  Company Number: US-ELI_LILLY_AND_COMPANY-US201106000096

PATIENT
  Age: 58 Year
  Sex: Female

DRUGS (1)
  1. FORTEO [Suspect]
     Indication: OSTEOPOROSIS

REACTIONS (5)
  - OSTEOCHONDROSIS [None]
  - NEOPLASM [None]
  - OSTEONECROSIS [None]
  - PAIN IN EXTREMITY [None]
  - UPPER LIMB FRACTURE [None]
